FAERS Safety Report 24172008 (Version 1)
Quarter: 2024Q3

REPORT INFORMATION
  Report Type: Report from Study
  Country: US (occurrence: None)
  Receive Date: 20240805
  Receipt Date: 20240805
  Transmission Date: 20241017
  Serious: Yes (Hospitalization)
  Sender: ASTRAZENECA
  Company Number: 2023A235362

PATIENT
  Sex: Female
  Weight: 122.9 kg

DRUGS (16)
  1. FASENRA [Suspect]
     Active Substance: BENRALIZUMAB
     Indication: Asthma
     Dosage: FREQUENCY OF FASENRA DOSE IS EVERY 56 DAYS
     Route: 058
  2. TRULICITY [Concomitant]
     Active Substance: DULAGLUTIDE
  3. MONTELUKAST [Concomitant]
     Active Substance: MONTELUKAST SODIUM
  4. TRESIBA [Concomitant]
     Active Substance: INSULIN DEGLUDEC
  5. NOVOLOG [Concomitant]
     Active Substance: INSULIN ASPART
  6. DALIRESP [Concomitant]
     Active Substance: ROFLUMILAST
  7. SPIRIVA [Concomitant]
     Active Substance: TIOTROPIUM BROMIDE MONOHYDRATE
  8. ROSUVASTATIN [Concomitant]
     Active Substance: ROSUVASTATIN\ROSUVASTATIN CALCIUM
  9. BUMETANIDE [Concomitant]
     Active Substance: BUMETANIDE
  10. ASPIRIN [Concomitant]
     Active Substance: ASPIRIN
  11. CLOPIDOGREL [Concomitant]
     Active Substance: CLOPIDOGREL BISULFATE
  12. POTASSIUM [Concomitant]
     Active Substance: POTASSIUM
  13. ALLOPURINOL [Concomitant]
     Active Substance: ALLOPURINOL
  14. RANITIDINE [Concomitant]
     Active Substance: RANITIDINE
  15. VITAMIN D2 [Concomitant]
     Active Substance: ERGOCALCIFEROL
  16. LOSARTAN [Concomitant]
     Active Substance: LOSARTAN

REACTIONS (4)
  - Chronic obstructive pulmonary disease [Unknown]
  - Asthma [Unknown]
  - Product dose omission issue [Unknown]
  - Product use issue [Unknown]
